FAERS Safety Report 7090104-X (Version None)
Quarter: 2010Q4

REPORT INFORMATION
  Report Type: 
  Country: None (occurrence: None)
  Receive Date: 20101105
  Receipt Date: 20101105
  Transmission Date: 20110411
  Serious: Yes (Other)
  Sender: FDA-Public Use
  Company Number: None

PATIENT
  Sex: Male
  Weight: 95.2554 kg

DRUGS (1)
  1. FERREX 150 FORTE CAPSULE [Suspect]
     Indication: SURGERY
     Dosage: 1 CAPSULS TWICE A DAY
     Dates: start: 20101001, end: 20101023

REACTIONS (4)
  - ABDOMINAL PAIN UPPER [None]
  - CONSTIPATION [None]
  - DIARRHOEA [None]
  - DRUG INTOLERANCE [None]
